FAERS Safety Report 6525264-X (Version None)
Quarter: 2010Q1

REPORT INFORMATION
  Report Type: 
  Country: None (occurrence: None)
  Receive Date: 20100104
  Receipt Date: 20091222
  Transmission Date: 20100710
  Serious: Yes (Death)
  Sender: FDA-Public Use
  Company Number: US-PFIZER INC-2009313617

PATIENT
  Age: 19 Year
  Sex: Male

DRUGS (4)
  1. XANAX [Suspect]
  2. OXYCONTIN [Suspect]
  3. PERCOCET [Suspect]
  4. ALCOHOL [Suspect]

REACTIONS (3)
  - DRUG ABUSE [None]
  - INTENTIONAL DRUG MISUSE [None]
  - OVERDOSE [None]
